FAERS Safety Report 18843613 (Version 1)
Quarter: 2021Q1

REPORT INFORMATION
  Report Type: Report from Study
  Country: US (occurrence: US)
  Receive Date: 20210203
  Receipt Date: 20210203
  Transmission Date: 20210419
  Serious: No
  Sender: FDA-Public Use
  Company Number: US-EXELIXIS-CABO-20030350

PATIENT
  Sex: Female

DRUGS (24)
  1. COLACE [Concomitant]
     Active Substance: DOCUSATE SODIUM
  2. DESMOPRESSIN [Concomitant]
     Active Substance: DESMOPRESSIN
  3. ONDANSETRON [Concomitant]
     Active Substance: ONDANSETRON
  4. TRAZODONE HYDROCHLORIDE. [Concomitant]
     Active Substance: TRAZODONE HYDROCHLORIDE
  5. AMLODIPINE [Concomitant]
     Active Substance: AMLODIPINE BESYLATE
  6. CABOMETYX [Suspect]
     Active Substance: CABOZANTINIB S-MALATE
     Indication: RENAL CANCER
     Dosage: 60 MG, QD
     Route: 048
     Dates: start: 20200424
  7. HYDROCORTISONE. [Concomitant]
     Active Substance: HYDROCORTISONE
  8. NORTRIPTYLINE [Concomitant]
     Active Substance: NORTRIPTYLINE
  9. OMEPRAZOLE. [Concomitant]
     Active Substance: OMEPRAZOLE
  10. CABOMETYX [Suspect]
     Active Substance: CABOZANTINIB S-MALATE
     Dosage: 20 MG, QD
     Route: 048
  11. SCOPOLAMINE [Concomitant]
     Active Substance: SCOPOLAMINE
  12. CLOBETASOL [Concomitant]
     Active Substance: CLOBETASOL
  13. CORTEF [Concomitant]
     Active Substance: HYDROCORTISONE
  14. LIDOCAINE. [Concomitant]
     Active Substance: LIDOCAINE
  15. TOPIRAMATE. [Concomitant]
     Active Substance: TOPIRAMATE
  16. PREVIDENT [Concomitant]
     Active Substance: SODIUM FLUORIDE
  17. SYNTHROID [Concomitant]
     Active Substance: LEVOTHYROXINE SODIUM
  18. ALPRAZOLAM. [Concomitant]
     Active Substance: ALPRAZOLAM
  19. AMOXICILLIN/CLAV POT [Concomitant]
     Active Substance: AMOXICILLIN\CLAVULANATE POTASSIUM
  20. DICLOFENAC [Concomitant]
     Active Substance: DICLOFENAC
  21. SUMATRIPTAN. [Concomitant]
     Active Substance: SUMATRIPTAN
  22. HYDROCODONE BITARTRATE AND ACETAMINOPHEN [Concomitant]
     Active Substance: ACETAMINOPHEN\HYDROCODONE BITARTRATE
  23. LANSOPRAZOLE. [Concomitant]
     Active Substance: LANSOPRAZOLE
  24. LEVOTHYROXINE. [Concomitant]
     Active Substance: LEVOTHYROXINE

REACTIONS (4)
  - Blood pressure increased [Not Recovered/Not Resolved]
  - Localised infection [Unknown]
  - Blood sodium abnormal [Not Recovered/Not Resolved]
  - Headache [Not Recovered/Not Resolved]
